FAERS Safety Report 5205586-5 (Version None)
Quarter: 2006Q4

REPORT INFORMATION
  Report Type: 
  Country: None (occurrence: None)
  Receive Date: 20061027
  Receipt Date: 20060919
  Transmission Date: 20070319
  Serious: No
  Sender: FDA-Public Use
  Company Number: POMP-10828

PATIENT
  Age: 7 Month
  Sex: Female

DRUGS (1)
  1. MYOZYME [Suspect]
     Indication: GLYCOGEN STORAGE DISEASE TYPE II
     Dates: start: 20060101

REACTIONS (1)
  - URINARY TRACT INFECTION [None]
